FAERS Safety Report 6249045-X (Version None)
Quarter: 2009Q2

REPORT INFORMATION
  Report Type: 
  Country: None (occurrence: None)
  Receive Date: 20090629
  Receipt Date: 20090619
  Transmission Date: 20091009
  Serious: Yes (Other)
  Sender: FDA-Public Use
  Company Number: JP-JNJFOC-20090605120

PATIENT
  Sex: Male

DRUGS (8)
  1. CRAVIT [Suspect]
     Indication: COLITIS
     Route: 048
  2. LOXONIN [Concomitant]
     Route: 048
  3. BIOFERMIN R [Concomitant]
     Route: 048
  4. ALBUMIN TANNATE [Concomitant]
     Route: 048
  5. PL GRAN [Concomitant]
     Route: 065
  6. FOSMICIN S [Concomitant]
     Route: 041
  7. PRIMPERAN [Concomitant]
     Route: 041
  8. NEUROTROPIN [Concomitant]
     Route: 041

REACTIONS (2)
  - DRUG ERUPTION [None]
  - DYSPNOEA [None]
